FAERS Safety Report 5384414-1 (Version None)
Quarter: 2007Q3

REPORT INFORMATION
  Report Type: 
  Country: None (occurrence: None)
  Receive Date: 20070711
  Receipt Date: 20070129
  Transmission Date: 20080115
  Serious: No
  Sender: FDA-Public Use
  Company Number: US-AMGEN-KDL208889

PATIENT
  Sex: Male

DRUGS (2)
  1. KINERET [Suspect]
     Indication: RHEUMATOID ARTHRITIS
     Route: 058
     Dates: start: 20030101
  2. PLAQUENIL [Concomitant]
     Route: 048
     Dates: start: 20030101

REACTIONS (2)
  - PRURITUS GENERALISED [None]
  - RASH GENERALISED [None]
